FAERS Safety Report 8124567-5 (Version None)
Quarter: 2012Q1

REPORT INFORMATION
  Report Type: 
  Country: None (occurrence: None)
  Receive Date: 20120209
  Receipt Date: 20120125
  Transmission Date: 20120608
  Serious: Yes (Other)
  Sender: FDA-Public Use
  Company Number: US-BAYER-2012-010327

PATIENT
  Age: 49 Year
  Sex: Female

DRUGS (23)
  1. PAPAVERINE [Concomitant]
     Dosage: 90 MG, UNK
     Dates: start: 20031017, end: 20031017
  2. VERSED [Concomitant]
     Dosage: UNK
     Dates: start: 20031017, end: 20031017
  3. VERAPAMIL [Concomitant]
     Dosage: 240 MG, QD
  4. ZOCOR [Concomitant]
     Dosage: 40 MG, QD
  5. ZYBAN [Concomitant]
     Dosage: 150 MG, QD
  6. LIDOCAINE [Concomitant]
     Dosage: 50 MG, UNK
     Dates: start: 20031017, end: 20031017
  7. ETOMIDATE [Concomitant]
     Dosage: UNK
     Dates: start: 20031017, end: 20031017
  8. TRASYLOL [Suspect]
     Dosage: 50 CC/HR INFUSION
     Dates: start: 20031017, end: 20031017
  9. LASIX [Concomitant]
     Dosage: UNK UNK, QD
  10. PLATELETS [Concomitant]
  11. LASIX [Concomitant]
     Dosage: 20 MG, UNK
     Dates: start: 20031017, end: 20031017
  12. AVANDIA [Concomitant]
     Dosage: 4 MG, AT NIGHT
  13. ZINACEF [Concomitant]
     Dosage: 1.5 G, UNK
     Dates: start: 20031017, end: 20031017
  14. TRASYLOL [Suspect]
     Indication: CORONARY ARTERY BYPASS
     Dosage: 100 ML, BID
     Route: 042
     Dates: start: 20031017, end: 20031017
  15. MAXZIDE [Concomitant]
     Dosage: 50 MG, QD
  16. LABETALOL HCL [Concomitant]
     Dosage: 10 MG, UNK
     Dates: start: 20031017, end: 20031017
  17. PROTAMINE SULFATE [Concomitant]
     Dosage: UNK
     Dates: start: 20031017, end: 20031017
  18. CAPTOPRIL [Concomitant]
     Dosage: 10 MG, BID
  19. SUCCINYLCHOLINE CHLORIDE [Concomitant]
     Dosage: 140 MG, UNK
     Dates: start: 20031017, end: 20031017
  20. PLAVIX [Concomitant]
     Dosage: 75 MG, QD
  21. HEPARIN [Concomitant]
     Dosage: UNK
     Dates: start: 20031017, end: 20031017
  22. ROCURONIUM BROMIDE [Concomitant]
     Dosage: 50 MG, UNK
     Dates: start: 20031017, end: 20031017
  23. NITROGLYCERIN [Concomitant]
     Dosage: UNK
     Dates: start: 20031017, end: 20031017

REACTIONS (1)
  - RENAL IMPAIRMENT [None]
